FAERS Safety Report 12884023 (Version 2)
Quarter: 2016Q4

REPORT INFORMATION
  Report Type: Report from Study
  Country: US (occurrence: US)
  Receive Date: 20161026
  Receipt Date: 20161116
  Transmission Date: 20170207
  Serious: Yes (Other)
  Sender: FDA-Public Use
  Company Number: US-AMGEN-USASL2016147590

PATIENT
  Age: 63 Year
  Sex: Female

DRUGS (1)
  1. ENBREL [Suspect]
     Active Substance: ETANERCEPT
     Indication: PSORIASIS
     Dosage: 50 MG, ONE TO TWO TIMES PER WEEK
     Route: 065

REACTIONS (3)
  - Breast cancer [Unknown]
  - Intentional product misuse [Unknown]
  - Psoriasis [Unknown]

NARRATIVE: CASE EVENT DATE: 201608
